FAERS Safety Report 19463567 (Version 3)
Quarter: 2022Q1

REPORT INFORMATION
  Report Type: Spontaneous
  Country: IN (occurrence: IN)
  Receive Date: 20210625
  Receipt Date: 20220202
  Transmission Date: 20220423
  Serious: Yes (Hospitalization)
  Sender: FDA-Public Use
  Company Number: IN-PFIZER INC-2020061754

PATIENT
  Age: 62 Year
  Sex: Female

DRUGS (5)
  1. PALBOCICLIB [Suspect]
     Active Substance: PALBOCICLIB
     Indication: Breast cancer metastatic
     Dosage: 100 MG, CYCLIC (ONCE A DAY FOR 21 DAYS (3 WEEKS ON AND 1 WEEK OFF))
     Route: 048
     Dates: start: 20200201
  2. PALBOCICLIB [Suspect]
     Active Substance: PALBOCICLIB
     Dosage: 75 MG, OD
     Route: 048
     Dates: start: 20200203
  3. PALBOCICLIB [Suspect]
     Active Substance: PALBOCICLIB
     Dosage: 75 MG, CYCLIC (ONCE A DAY FOR 3 WEEKS THEN 1 WEEK OFF )
     Dates: end: 20210604
  4. FEMARA [Concomitant]
     Active Substance: LETROZOLE
     Dosage: 1 DF, 1X/DAY
  5. FEMARA [Concomitant]
     Active Substance: LETROZOLE
     Dosage: 2.5 MG, CYCLIC

REACTIONS (7)
  - Cardiovascular disorder [Unknown]
  - Neoplasm progression [Unknown]
  - White blood cell count decreased [Unknown]
  - Full blood count abnormal [Unknown]
  - Haemoglobin decreased [Unknown]
  - Poikilocytosis [Unknown]
  - Anaemia [Unknown]
